FAERS Safety Report 23193510 (Version 1)
Quarter: 2023Q4

REPORT INFORMATION
  Report Type: Spontaneous
  Country: US (occurrence: US)
  Receive Date: 20231116
  Receipt Date: 20231116
  Transmission Date: 20240110
  Serious: No
  Sender: FDA-Public Use
  Company Number: US-BRISTOL-MYERS SQUIBB COMPANY-2023-159085

PATIENT
  Age: 34 Year
  Sex: Female

DRUGS (5)
  1. TRIAMCINOLONE ACETONIDE [Suspect]
     Active Substance: TRIAMCINOLONE ACETONIDE
     Indication: Injection site pain
     Dosage: UNKNOWN
     Dates: start: 202310, end: 202310
  2. LIDOCAINE [Concomitant]
     Active Substance: LIDOCAINE
     Indication: Injection site pain
     Dates: start: 202310
  3. TIGER BALM [CAMPHOR;MELALEUCA LEUCADENDRA OIL;MENTHOL;SYZYGIUM AROMATI [Concomitant]
     Indication: Injection site pain
     Dosage: UNKNOWN
     Dates: start: 202310
  4. REMODULIN [Concomitant]
     Active Substance: TREPROSTINIL
     Indication: Pulmonary arterial hypertension
     Dosage: UNKNOWN
     Route: 058
     Dates: start: 202309, end: 202310
  5. REMODULIN [Concomitant]
     Active Substance: TREPROSTINIL
     Dosage: UNKNOWN
     Route: 058
     Dates: start: 202309, end: 202310

REACTIONS (1)
  - Drug ineffective [Unknown]

NARRATIVE: CASE EVENT DATE: 20231001
